FAERS Safety Report 5929999-9 (Version None)
Quarter: 2008Q4

REPORT INFORMATION
  Report Type: 
  Country: None (occurrence: None)
  Receive Date: 20081024
  Receipt Date: 20081015
  Transmission Date: 20090506
  Serious: Yes (Hospitalization)
  Sender: FDA-Public Use
  Company Number: US-CELGENEUS-163-20785-08101188

PATIENT
  Sex: Male

DRUGS (1)
  1. THALOMID [Suspect]
     Indication: MULTIPLE MYELOMA
     Route: 048
     Dates: start: 20080818

REACTIONS (1)
  - STERNAL FRACTURE [None]
